FAERS Safety Report 6073249-2 (Version None)
Quarter: 2009Q1

REPORT INFORMATION
  Report Type: 
  Country: None (occurrence: None)
  Receive Date: 20090211
  Receipt Date: 20081223
  Transmission Date: 20090719
  Serious: No
  Sender: FDA-Public Use
  Company Number: A0761393A

PATIENT
  Sex: Male

DRUGS (2)
  1. ALTABAX [Suspect]
     Dosage: 1PCT PER DAY
     Route: 061
     Dates: start: 20081220
  2. NEBULIZER TREATMENT [Concomitant]

REACTIONS (3)
  - APPLICATION SITE HAEMATOMA [None]
  - BURNING SENSATION [None]
  - SWELLING [None]
